FAERS Safety Report 4648766-X (Version None)
Quarter: 2005Q2

REPORT INFORMATION
  Report Type: 
  Country: None (occurrence: None)
  Receive Date: 20050427
  Receipt Date: 20050415
  Transmission Date: 20051028
  Serious: Yes (Other)
  Sender: FDA-Public Use
  Company Number: 8010153

PATIENT
  Sex: Male
  Weight: 3.495 kg

DRUGS (2)
  1. KEPPRA [Suspect]
     Indication: CONVULSION
     Dosage: TRP
     Route: 064
     Dates: end: 20050413
  2. LAMOTRIGINE [Concomitant]
     Indication: CONVULSION
     Dosage: TRP
     Route: 064
     Dates: end: 20050413

REACTIONS (3)
  - BLISTER [None]
  - DRUG EXPOSURE DURING PREGNANCY [None]
  - NEONATAL DISORDER [None]
